FAERS Safety Report 14411598 (Version 3)
Quarter: 2018Q2

REPORT INFORMATION
  Report Type: Spontaneous
  Country: CA (occurrence: CA)
  Receive Date: 20180119
  Receipt Date: 20180420
  Transmission Date: 20180711
  Serious: Yes (Hospitalization, Other)
  Sender: FDA-Public Use
  Company Number: CA-GLAXOSMITHKLINE-CA2018GSK007549

PATIENT
  Age: 72 Year
  Sex: Female

DRUGS (1)
  1. BENLYSTA [Suspect]
     Active Substance: BELIMUMAB
     Indication: SYSTEMIC LUPUS ERYTHEMATOSUS
     Dosage: 650 MG, UNK
     Route: 042
     Dates: start: 20151120

REACTIONS (10)
  - Cerebrovascular accident [Recovering/Resolving]
  - Dementia [Recovering/Resolving]
  - Vomiting [Recovered/Resolved]
  - Drug effect incomplete [Not Recovered/Not Resolved]
  - Amnesia [Recovered/Resolved]
  - Fatigue [Not Recovered/Not Resolved]
  - Transient ischaemic attack [Recovering/Resolving]
  - Disorientation [Recovered/Resolved]
  - Seizure [Recovering/Resolving]
  - Fall [Recovering/Resolving]

NARRATIVE: CASE EVENT DATE: 201703
